FAERS Safety Report 8053190-6 (Version None)
Quarter: 2012Q1

REPORT INFORMATION
  Report Type: 
  Country: None (occurrence: None)
  Receive Date: 20120118
  Receipt Date: 20120116
  Transmission Date: 20120608
  Serious: Yes (Hospitalization)
  Sender: FDA-Public Use
  Company Number: CL-ROCHE-1030993

PATIENT
  Sex: Male
  Weight: 65 kg

DRUGS (5)
  1. ATORVASTATIN [Concomitant]
     Route: 048
     Dates: end: 20120108
  2. XELODA [Suspect]
     Indication: COLON CANCER
     Route: 048
     Dates: start: 20111222, end: 20120106
  3. NIFEDIPINE [Concomitant]
     Indication: HYPERTENSION
     Route: 048
     Dates: end: 20120108
  4. ENALAPRIL MALEATE [Concomitant]
     Indication: HYPERTENSION
     Route: 048
     Dates: end: 20120108
  5. OXALIPLATIN [Suspect]
     Indication: COLON CANCER
     Route: 042
     Dates: start: 20111222, end: 20120106

REACTIONS (1)
  - TOXICITY TO VARIOUS AGENTS [None]
